FAERS Safety Report 9310243 (Version 5)
Quarter: 2013Q4

REPORT INFORMATION
  Report Type: Spontaneous
  Country: JP (occurrence: JP)
  Receive Date: 20130527
  Receipt Date: 20131212
  Transmission Date: 20140711
  Serious: Yes (Hospitalization, Disabling, Congenital Anomaly, Other)
  Sender: FDA-Public Use
  Company Number: PHHY2013JP051619

PATIENT
  Sex: Female
  Weight: 2.18 kg

DRUGS (11)
  1. TEGRETOL [Suspect]
     Dosage: MATERNAL DOSE: 600 MG, DAILY
     Route: 064
  2. VALPROIC ACID [Suspect]
     Dosage: MATERNAL DOSE: 800 MG
     Route: 064
  3. CLOMIPRAMINE [Suspect]
     Dosage: MATERNAL DOSE: 25 MG
     Route: 064
  4. BROMAZEPAM [Suspect]
     Dosage: MATERNAL DOSE: 10 MG
     Route: 064
  5. FLUNITRAZEPAM [Suspect]
     Dosage: MATERNAL DOSE: 4 MG
     Route: 064
  6. TRIAZOLAM [Suspect]
     Dosage: MATERNAL DOSE: 0.5 MG
     Route: 064
  7. HALOPERIDOL [Suspect]
     Dosage: MATERNAL DOSE: 6 MG
     Route: 064
  8. OLANZAPINE [Suspect]
     Route: 064
  9. QUETIAPINE [Suspect]
     Route: 064
  10. RISPERIDONE [Suspect]
     Dosage: MATERNAL DOSE: 1 MG
     Route: 064
  11. BIPERIDEN HYDROCHLORIDE [Suspect]
     Dosage: MATERNAL DOSE: 2 MG
     Route: 064

REACTIONS (26)
  - Drug withdrawal syndrome neonatal [Recovering/Resolving]
  - Type 1 diabetes mellitus [Unknown]
  - Convulsion neonatal [Recovering/Resolving]
  - Tonic convulsion [Recovered/Resolved]
  - Opisthotonus [Unknown]
  - Cyanosis [Unknown]
  - Respiratory acidosis [Unknown]
  - Apnoeic attack [Not Recovered/Not Resolved]
  - Nervous system disorder [Unknown]
  - Irritability [Unknown]
  - Neonatal asphyxia [Unknown]
  - Muscular dystrophy [Unknown]
  - Floppy infant [Unknown]
  - Chylothorax [Unknown]
  - Tremor [Unknown]
  - Hyperprolactinaemia [Not Recovered/Not Resolved]
  - Hepatic function abnormal [Unknown]
  - Diarrhoea [Unknown]
  - Small for dates baby [Unknown]
  - Developmental delay [Unknown]
  - Foetal growth restriction [Unknown]
  - Hypoglycaemia [Recovered/Resolved]
  - C-reactive protein increased [Unknown]
  - Dermatitis [Unknown]
  - Eye discharge [Recovered/Resolved]
  - Foetal exposure during pregnancy [Unknown]
